FAERS Safety Report 25020746 (Version 1)
Quarter: 2025Q1

REPORT INFORMATION
  Report Type: Report from Study
  Country: CN (occurrence: CN)
  Receive Date: 20250227
  Receipt Date: 20250227
  Transmission Date: 20250409
  Serious: Yes (Death, Other)
  Sender: SANOFI AVENTIS
  Company Number: CN-DialogSolutions-SAAVPROD-PI743033-C2

PATIENT
  Sex: Female

DRUGS (4)
  1. DOCETAXEL [Suspect]
     Active Substance: DOCETAXEL
     Indication: Breast cancer metastatic
     Route: 041
  2. DOCETAXEL [Suspect]
     Active Substance: DOCETAXEL
     Indication: HER2 positive breast cancer
     Route: 041
  3. TRASTUZUMAB-STRF [Suspect]
     Active Substance: TRASTUZUMAB-STRF
     Indication: Breast cancer metastatic
     Route: 041
  4. TRASTUZUMAB-STRF [Suspect]
     Active Substance: TRASTUZUMAB-STRF
     Indication: HER2 positive breast cancer
     Dosage: 6 MG/KG, Q3W
     Route: 041

REACTIONS (1)
  - Dyspnoea [Fatal]
